FAERS Safety Report 5479281-1 (Version None)
Quarter: 2007Q4

REPORT INFORMATION
  Report Type: 
  Country: None (occurrence: None)
  Receive Date: 20071003
  Receipt Date: 20070927
  Transmission Date: 20080405
  Serious: Yes (Hospitalization)
  Sender: FDA-Public Use
  Company Number: 2007SP018084

PATIENT
  Age: 52 Year
  Sex: Female
  Weight: 77.5651 kg

DRUGS (13)
  1. PEG-INTRON [Suspect]
     Indication: HEPATITIS C
     Dosage: 120 MCG
     Dates: start: 20070717
  2. REBETOL [Suspect]
     Indication: HEPATITIS C
     Dosage: 400 MG
     Dates: start: 20070717
  3. COREG [Concomitant]
  4. LEVOTHYROXINE SODIUM [Concomitant]
  5. ROBAXIN [Concomitant]
  6. FERROUS SULFATE TAB [Concomitant]
  7. ALBUTEROL [Concomitant]
  8. LEVAQUIN [Concomitant]
  9. LOPERAMIDE HCL [Concomitant]
  10. PROMETHAZINE [Concomitant]
  11. FIORINAL [Concomitant]
  12. TOPAMAX [Concomitant]
  13. NAPROXEN [Concomitant]

REACTIONS (4)
  - AMMONIA INCREASED [None]
  - HEPATIC ATROPHY [None]
  - PLATELET COUNT DECREASED [None]
  - SPLENOMEGALY [None]
